FAERS Safety Report 17845818 (Version 1)
Quarter: 2020Q2

REPORT INFORMATION
  Report Type: Spontaneous
  Country: US (occurrence: US)
  Receive Date: 20200530
  Receipt Date: 20200530
  Transmission Date: 20200714
  Serious: No
  Sender: FDA-Public Use
  Company Number: None

PATIENT
  Age: 70 Year
  Sex: Male
  Weight: 117 kg

DRUGS (4)
  1. METFORMIN HYDROCHLORIDE EXTENDED-RELEASE TABLETS, USP 500MG [Suspect]
     Active Substance: METFORMIN HYDROCHLORIDE
     Indication: GLUCOSE TOLERANCE IMPAIRED
     Dosage: ?          QUANTITY:2 TABLET(S);?
     Route: 048
     Dates: start: 20190101, end: 20200530
  2. PRAVASTATIN. [Concomitant]
     Active Substance: PRAVASTATIN
  3. IBUPROFEN. [Concomitant]
     Active Substance: IBUPROFEN
  4. IRBESARTAN. [Concomitant]
     Active Substance: IRBESARTAN

REACTIONS (1)
  - Blood urine present [None]

NARRATIVE: CASE EVENT DATE: 20200526
